FAERS Safety Report 21250350 (Version 1)
Quarter: 2022Q3

REPORT INFORMATION
  Report Type: Spontaneous
  Country: US (occurrence: US)
  Receive Date: 20220824
  Receipt Date: 20220824
  Transmission Date: 20221027
  Serious: Yes (Other)
  Sender: FDA-Public Use
  Company Number: US-BoehringerIngelheim-2022-BI-188408

PATIENT
  Sex: Male

DRUGS (6)
  1. OFEV [Suspect]
     Active Substance: NINTEDANIB
     Indication: Idiopathic pulmonary fibrosis
     Dates: start: 201411, end: 2015
  2. Covid vaccine [Concomitant]
     Indication: Product used for unknown indication
     Dosage: FIRST DOSE
     Dates: start: 202101, end: 202101
  3. Covid vaccine [Concomitant]
     Dosage: 2ND DOSE
     Dates: start: 202102, end: 202102
  4. Covid vaccine [Concomitant]
     Dosage: BOOSTER SHOT DOSE
     Dates: start: 202111, end: 202111
  5. Covid vaccine [Concomitant]
     Dosage: BOOSTER SHOT 2ND DOSE
     Dates: start: 202204, end: 202204
  6. ESBRIET [Concomitant]
     Active Substance: PIRFENIDONE
     Indication: Product used for unknown indication
     Dates: start: 2013

REACTIONS (8)
  - Respiration abnormal [Unknown]
  - Nausea [Recovered/Resolved]
  - Vomiting [Recovered/Resolved]
  - Asthenia [Unknown]
  - Gait disturbance [Unknown]
  - Mobility decreased [Not Recovered/Not Resolved]
  - Heart rate increased [Recovered/Resolved]
  - Pyrexia [Recovered/Resolved with Sequelae]

NARRATIVE: CASE EVENT DATE: 20141101
